FAERS Safety Report 17750010 (Version 1)
Quarter: 2020Q2

REPORT INFORMATION
  Report Type: Spontaneous
  Country: TR (occurrence: TR)
  Receive Date: 20200506
  Receipt Date: 20200506
  Transmission Date: 20200714
  Serious: No
  Sender: FDA-Public Use
  Company Number: TR-TOLMAR, INC.-20TR021157

PATIENT
  Age: 31 Year
  Sex: Male

DRUGS (1)
  1. ELIGARD [Suspect]
     Active Substance: LEUPROLIDE ACETATE
     Indication: PRODUCT USED FOR UNKNOWN INDICATION
     Dosage: UNK
     Route: 065

REACTIONS (4)
  - Device leakage [Unknown]
  - Intercepted product preparation error [Unknown]
  - Needle issue [Unknown]
  - Occupational exposure to product [Unknown]

NARRATIVE: CASE EVENT DATE: 20200421
